FAERS Safety Report 5136545-9 (Version None)
Quarter: 2006Q4

REPORT INFORMATION
  Report Type: 
  Country: None (occurrence: None)
  Receive Date: 20061023
  Receipt Date: 20061010
  Transmission Date: 20070319
  Serious: Yes (Other)
  Sender: FDA-Public Use
  Company Number: 2006120384

PATIENT

DRUGS (3)
  1. CHANTIX [Suspect]
     Dates: start: 20060901
  2. METHADONE HCL [Suspect]
  3. FIBERCON (POLYCARBOPHIL CALCIUM) [Concomitant]

REACTIONS (8)
  - ABASIA [None]
  - ABNORMAL DREAMS [None]
  - CONSTIPATION [None]
  - FATIGUE [None]
  - FEELING ABNORMAL [None]
  - FOOT FRACTURE [None]
  - INCREASED APPETITE [None]
  - STRESS [None]
